FAERS Safety Report 9099305 (Version 1)
Quarter: 2013Q1

REPORT INFORMATION
  Report Type: Spontaneous
  Country: JP (occurrence: JP)
  Receive Date: 20130214
  Receipt Date: 20130214
  Transmission Date: 20140127
  Serious: Yes (Other)
  Sender: FDA-Public Use
  Company Number: JP-ROCHE-1190779

PATIENT
  Age: 11 Year
  Sex: Female
  Weight: 47 kg

DRUGS (2)
  1. PEGASYS [Suspect]
     Indication: PRODUCT USED FOR UNKNOWN INDICATION
     Route: 058
     Dates: start: 20090804, end: 20100708
  2. CALONAL [Concomitant]
     Indication: PYREXIA
     Dosage: A DOSE
     Route: 048
     Dates: start: 20090804, end: 20090818

REACTIONS (2)
  - Failure to thrive [Recovering/Resolving]
  - Pyrexia [Recovering/Resolving]
